FAERS Safety Report 5590223-0 (Version None)
Quarter: 2008Q1

REPORT INFORMATION
  Report Type: 
  Country: None (occurrence: None)
  Receive Date: 20080114
  Receipt Date: 20080108
  Transmission Date: 20080703
  Serious: Yes (Life-Threatening, Disabling)
  Sender: FDA-Public Use
  Company Number: FR-ASTRAZENECA-2008CG00042

PATIENT
  Age: 13984 Day
  Sex: Male

DRUGS (11)
  1. DIPRIVAN [Suspect]
     Indication: ANAESTHESIA
     Route: 042
     Dates: start: 20071016, end: 20071016
  2. DIPRIVAN [Suspect]
     Route: 042
     Dates: start: 20071016, end: 20071016
  3. DIPRIVAN [Suspect]
     Route: 042
     Dates: start: 20071020, end: 20071021
  4. NIMBEX [Suspect]
     Indication: ANAESTHESIA
     Route: 042
     Dates: start: 20071016, end: 20071016
  5. NIMBEX [Suspect]
     Route: 042
     Dates: start: 20071016, end: 20071018
  6. NIMBEX [Suspect]
     Route: 042
     Dates: start: 20071021, end: 20071024
  7. SUFENTANIL MERCK [Suspect]
     Indication: ANAESTHESIA
     Route: 042
     Dates: start: 20071016, end: 20071016
  8. SUFENTANIL MERCK [Suspect]
     Route: 042
     Dates: start: 20071016, end: 20071024
  9. CEFAZOLINE MERCK [Suspect]
     Route: 042
     Dates: start: 20071016, end: 20071016
  10. PERFALGAN [Suspect]
     Route: 042
     Dates: start: 20071016, end: 20071016
  11. PERFALGAN [Suspect]
     Route: 042
     Dates: start: 20071016, end: 20071025

REACTIONS (6)
  - ACUTE PULMONARY OEDEMA [None]
  - ANAPHYLACTIC SHOCK [None]
  - CEREBRAL ISCHAEMIA [None]
  - DIZZINESS [None]
  - RESPIRATORY ARREST [None]
  - VISUAL DISTURBANCE [None]
